FAERS Safety Report 4263431-9 (Version None)
Quarter: 2004Q1

REPORT INFORMATION
  Report Type: 
  Country: None (occurrence: None)
  Receive Date: 20040104
  Receipt Date: 20040104
  Transmission Date: 20041129
  Serious: Yes (Other)
  Sender: FDA-Public Use
  Company Number: None

PATIENT
  Sex: Male
  Weight: 70.4 kg

DRUGS (2)
  1. XELODA [Suspect]
     Dosage: 1500 MG BID PO
     Route: 048
     Dates: end: 20031229
  2. CARBOPLATIN [Suspect]
     Dosage: @1.5 AUC IV WEEKLY
     Route: 042
     Dates: end: 20031222

REACTIONS (1)
  - MUCOSAL INFLAMMATION [None]
